FAERS Safety Report 10653862 (Version 1)
Quarter: 2014Q4

REPORT INFORMATION
  Report Type: Spontaneous
  Country: US (occurrence: None)
  Receive Date: 20141212
  Receipt Date: 20141212
  Transmission Date: 20150529
  Serious: Yes (Hospitalization, Other)
  Sender: FDA-Public Use
  Company Number: None

PATIENT
  Age: 48 Year
  Sex: Female
  Weight: 84.37 kg

DRUGS (5)
  1. CYCLOBENZAPRINE [Suspect]
     Active Substance: CYCLOBENZAPRINE
     Indication: TEMPOROMANDIBULAR JOINT SYNDROME
     Dosage: TOOK 1 PILL BY MOUTH
     Route: 048
     Dates: start: 20130720, end: 20130720
  2. PREDNISONE. [Concomitant]
     Active Substance: PREDNISONE
  3. ENDOVENOUS LASER TREATMENTS [Concomitant]
  4. MIRENA [Concomitant]
     Active Substance: LEVONORGESTREL
  5. VALTREX [Concomitant]
     Active Substance: VALACYCLOVIR HYDROCHLORIDE

REACTIONS (8)
  - Balance disorder [None]
  - Dry mouth [None]
  - VIIth nerve paralysis [None]
  - Muscular weakness [None]
  - Visual impairment [None]
  - Eye pain [None]
  - Coordination abnormal [None]
  - Contusion [None]

NARRATIVE: CASE EVENT DATE: 20130720
